FAERS Safety Report 24372746 (Version 1)
Quarter: 2024Q3

REPORT INFORMATION
  Report Type: Spontaneous
  Country: US (occurrence: US)
  Receive Date: 20240927
  Receipt Date: 20240927
  Transmission Date: 20241016
  Serious: No
  Sender: Thea Pharma
  Company Number: US-THEA-2024001509

PATIENT
  Sex: Female

DRUGS (3)
  1. IYUZEH [Suspect]
     Active Substance: LATANOPROST
     Indication: Glaucoma
     Dosage: AT NIGHT ON BOTH EYES
     Route: 047
     Dates: start: 202406
  2. METHACHOLINE [Concomitant]
     Active Substance: METHACHOLINE
     Indication: Product used for unknown indication
  3. REFRESH CLASSIC [Concomitant]
     Active Substance: POLYVINYL ALCOHOL\POVIDONE
     Indication: Product used for unknown indication

REACTIONS (1)
  - Vision blurred [Not Recovered/Not Resolved]

NARRATIVE: CASE EVENT DATE: 20240101
